FAERS Safety Report 19861933 (Version 1)
Quarter: 2021Q3

REPORT INFORMATION
  Report Type: Spontaneous
  Country: US (occurrence: US)
  Receive Date: 20210921
  Receipt Date: 20210921
  Transmission Date: 20211014
  Serious: No
  Sender: FDA-Public Use
  Company Number: US-PFIZER INC-202101185978

PATIENT
  Age: 24 Year
  Sex: Male
  Weight: 80 kg

DRUGS (3)
  1. CHANTIX [Suspect]
     Active Substance: VARENICLINE TARTRATE
     Dosage: 0.5 MG, 2X/DAY, ONE TABLET IN THE MORNING AND ONE TABLET IN THE EVENING
  2. CHANTIX [Suspect]
     Active Substance: VARENICLINE TARTRATE
     Indication: SMOKING CESSATION THERAPY
     Dosage: 0.5 MG, 1X/DAY, ONCE DAILY FOR 1?3 DAYS, THEN DAYS 4?7
  3. CHANTIX [Suspect]
     Active Substance: VARENICLINE TARTRATE
     Dosage: 1 MG, 2X/DAY, 2ND WEEK,DAYS 8?14; 3RD WEEK, 6 DAYS, 1MG IN THE MORNING AND ONE IN THE EVENING
     Dates: start: 202105

REACTIONS (2)
  - Weight decreased [Recovering/Resolving]
  - Recalled product administered [Unknown]

NARRATIVE: CASE EVENT DATE: 202105
